FAERS Safety Report 8207695-5 (Version None)
Quarter: 2012Q1

REPORT INFORMATION
  Report Type: 
  Country: None (occurrence: None)
  Receive Date: 20120314
  Receipt Date: 20110307
  Transmission Date: 20120608
  Serious: No
  Sender: FDA-Public Use
  Company Number: US-MYLANLABS-2011S1004768

PATIENT
  Sex: Male

DRUGS (1)
  1. VERAPAMIL [Suspect]

REACTIONS (1)
  - BLOOD PRESSURE INCREASED [None]
